FAERS Safety Report 12402698 (Version 1)
Quarter: 2016Q2

REPORT INFORMATION
  Report Type: Spontaneous
  Country: RU (occurrence: RU)
  Receive Date: 20160525
  Receipt Date: 20160525
  Transmission Date: 20160815
  Serious: Yes (Hospitalization, Other)
  Sender: FDA-Public Use
  Company Number: RU-BAYER-2016-097160

PATIENT
  Age: 38 Year
  Sex: Female

DRUGS (3)
  1. YARINA PLUS [Suspect]
     Active Substance: DROSPIRENONE\ETHINYL ESTRADIOL\LEVOMEFOLATE CALCIUM
     Indication: CONTRACEPTION
     Dosage: 1 DF, QD
     Route: 048
     Dates: start: 201507, end: 201508
  2. WARFARIN [Concomitant]
     Active Substance: WARFARIN
  3. MIRENA [Suspect]
     Active Substance: LEVONORGESTREL
     Indication: CONTRACEPTION
     Dosage: 20 MCG/24HR, CONT
     Route: 015
     Dates: start: 20150907

REACTIONS (4)
  - Vena cava thrombosis [None]
  - Abdominal pain [None]
  - Thrombosis [None]
  - Pain in extremity [None]

NARRATIVE: CASE EVENT DATE: 201511
